FAERS Safety Report 23183271 (Version 1)
Quarter: 2023Q4

REPORT INFORMATION
  Report Type: Spontaneous
  Country: JP (occurrence: JP)
  Receive Date: 20231114
  Receipt Date: 20231114
  Transmission Date: 20240110
  Serious: Yes (Death)
  Sender: FDA-Public Use
  Company Number: JP-NShinyaku-EVA202307454ZZLILLY

PATIENT
  Sex: Male

DRUGS (3)
  1. TADALAFIL [Suspect]
     Active Substance: TADALAFIL
     Indication: Atrioventricular septal defect
     Dosage: UNK UNK, UNKNOWN
     Route: 045
  2. UPTRAVI [Suspect]
     Active Substance: SELEXIPAG
     Indication: Atrioventricular septal defect
     Dosage: UNK UNK, UNKNOWN
     Route: 045
     Dates: start: 20230905, end: 20231109
  3. OPSUMIT [Concomitant]
     Active Substance: MACITENTAN
     Indication: Atrioventricular septal defect
     Dosage: UNKNOWN
     Route: 045

REACTIONS (2)
  - Atrioventricular septal defect [Fatal]
  - Off label use [Unknown]

NARRATIVE: CASE EVENT DATE: 20231109
